FAERS Safety Report 15275102 (Version 3)
Quarter: 2018Q3

REPORT INFORMATION
  Report Type: Spontaneous
  Country: US (occurrence: US)
  Receive Date: 20180814
  Receipt Date: 20180924
  Transmission Date: 20181010
  Serious: No
  Sender: FDA-Public Use
  Company Number: US-PFIZER INC-2018318442

PATIENT
  Age: 61 Year
  Sex: Male
  Weight: 47.3 kg

DRUGS (2)
  1. LYRICA [Suspect]
     Active Substance: PREGABALIN
     Indication: PAIN IN EXTREMITY
  2. LYRICA [Suspect]
     Active Substance: PREGABALIN
     Indication: LUMBAR RADICULOPATHY
     Dosage: 150 MG, 2X/DAY (BEDTIME AND SUPPER,2QD)
     Route: 048
     Dates: start: 2018

REACTIONS (2)
  - Dysstasia [Unknown]
  - Pain [Unknown]
